FAERS Safety Report 25273455 (Version 1)
Quarter: 2025Q2

REPORT INFORMATION
  Report Type: Spontaneous
  Country: NO (occurrence: NO)
  Receive Date: 20250506
  Receipt Date: 20250506
  Transmission Date: 20250717
  Serious: Yes (Hospitalization)
  Sender: ROCHE
  Company Number: NO-ROCHE-10000273508

PATIENT
  Sex: Male

DRUGS (1)
  1. COLUMVI [Suspect]
     Active Substance: GLOFITAMAB-GXBM
     Indication: Product used for unknown indication
     Route: 050

REACTIONS (3)
  - Disease progression [Unknown]
  - Cytokine release syndrome [Unknown]
  - Drug ineffective [Unknown]
